FAERS Safety Report 8832982 (Version 1)
Quarter: 2012Q4

REPORT INFORMATION
  Report Type: 
  Country: US (occurrence: US)
  Receive Date: 20121010
  Receipt Date: 20121010
  Transmission Date: 20130627
  Serious: No
  Sender: FDA-Public Use
  Company Number: US-PFIZER INC-2012250639

PATIENT
  Age: 37 Year
  Sex: Male
  Weight: 109 kg

DRUGS (1)
  1. LYRICA [Suspect]
     Indication: NERVE INJURY
     Dosage: 75 mg, 2x/day
     Route: 048
     Dates: start: 201208, end: 201208

REACTIONS (1)
  - Toothache [Not Recovered/Not Resolved]
